FAERS Safety Report 17899471 (Version 1)
Quarter: 2020Q2

REPORT INFORMATION
  Report Type: Spontaneous
  Country: CA (occurrence: CA)
  Receive Date: 20200616
  Receipt Date: 20200616
  Transmission Date: 20200714
  Serious: Yes (Other)
  Sender: FDA-Public Use
  Company Number: CA-GLAXOSMITHKLINE-CA2020GSK097687

PATIENT
  Sex: Female

DRUGS (2)
  1. WELLBUTRIN XL [Suspect]
     Active Substance: BUPROPION HYDROCHLORIDE
     Dosage: 150 MG, 1D (2.5 ONCE DAILY, 3 TABLETS THE NEXT DAY, ALTERNATING)
     Route: 048
  2. WELLBUTRIN XL [Suspect]
     Active Substance: BUPROPION HYDROCHLORIDE
     Indication: DEPRESSION
     Dosage: 300 MG, 1D (SINCE PATIENT WAS 35)
     Route: 048

REACTIONS (7)
  - Cerebral disorder [Not Recovered/Not Resolved]
  - Lethargy [Unknown]
  - Therapeutic product effect decreased [Unknown]
  - Drug tolerance [Not Recovered/Not Resolved]
  - Hypothyroidism [Unknown]
  - Product prescribing error [Unknown]
  - Fatigue [Unknown]
